FAERS Safety Report 6939429-6 (Version None)
Quarter: 2010Q3

REPORT INFORMATION
  Report Type: 
  Country: None (occurrence: None)
  Receive Date: 20100819
  Receipt Date: 20100810
  Transmission Date: 20110219
  Serious: Yes (Hospitalization, Other)
  Sender: FDA-Public Use
  Company Number: 2010MA001741

PATIENT
  Age: 35 Year
  Sex: Male

DRUGS (12)
  1. RISPERIDINE [Suspect]
     Indication: PRODUCT USED FOR UNKNOWN INDICATION
     Dosage: 2MG;QD;PO
     Route: 048
  2. RISPERIDONE [Suspect]
     Indication: SCHIZOPHRENIA
     Dosage: 50MG;BIW;IM
     Route: 012
     Dates: end: 20100617
  3. DICLOFRENAC SODIUM DELAYED-RELEASE TABLETS, 50MG (PUREPAC) (DICLOFENAC [Suspect]
     Indication: PRODUCT USED FOR UNKNOWN INDICATION
     Dosage: 50MG;TID;
  4. VALDOXAN (NO PREF. NAME) [Suspect]
     Indication: PRODUCT USED FOR UNKNOWN INDICATION
     Dosage: 25MG; QD
  5. ZOPICLONE [Suspect]
     Indication: PRODUCT USED FOR UNKNOWN INDICATION
     Dosage: 7.5 MG; QD
  6. LANSOPRAZOLE [Suspect]
     Indication: PRODUCT USED FOR UNKNOWN INDICATION
     Dosage: 30MG; BID;
  7. TETRABENAZINE (TETRABENAZINE) [Concomitant]
     Indication: PRODUCT USED FOR UNKNOWN INDICATION
     Dosage: 12.5 MG;QD
  8. METHADONE HCL [Suspect]
     Indication: PRODUCT USED FOR UNKNOWN INDICATION
     Dosage: 80 MG;QD
  9. ALCOHOL (ETHANOL) [Suspect]
     Indication: PRODUCT USED FOR UNKNOWN INDICATION
  10. COCAINE (COCAINE) [Suspect]
     Indication: PRODUCT USED FOR UNKNOWN INDICATION
  11. AMPHETAMINE SULFATE [Suspect]
     Indication: PRODUCT USED FOR UNKNOWN INDICATION
  12. RISPERDAL CONSTA [Concomitant]

REACTIONS (4)
  - ALCOHOL USE [None]
  - DRUG ABUSE [None]
  - ELECTROCARDIOGRAM ABNORMAL [None]
  - MULTIPLE DRUG OVERDOSE INTENTIONAL [None]
